FAERS Safety Report 4869230-9 (Version None)
Quarter: 2005Q4

REPORT INFORMATION
  Report Type: 
  Country: None (occurrence: None)
  Receive Date: 20051228
  Receipt Date: 20051228
  Transmission Date: 20060501
  Serious: Yes (Other)
  Sender: FDA-Public Use
  Company Number: None

PATIENT
  Age: 54 Year
  Sex: Female
  Weight: 83.9154 kg

DRUGS (1)
  1. BEXTRA [Suspect]
     Dates: start: 20010101, end: 20040401

REACTIONS (1)
  - CHEST PAIN [None]
